FAERS Safety Report 9046162 (Version 1)
Quarter: 2013Q1

REPORT INFORMATION
  Report Type: Spontaneous
  Country: CA (occurrence: CA)
  Receive Date: 20130201
  Receipt Date: 20130201
  Transmission Date: 20140127
  Serious: Yes (Other)
  Sender: FDA-Public Use
  Company Number: PHHY2013CA008643

PATIENT
  Age: 49 Year
  Sex: Female
  Weight: 87 kg

DRUGS (18)
  1. DIOVAN HCT [Suspect]
     Dosage: 1 DF (80/12.5MG) EVERYDAY
     Route: 048
  2. ELAVIL [Concomitant]
     Dosage: UNK
  3. FERROUS FUMARATE [Concomitant]
     Dosage: UNK
  4. IMOVANE [Concomitant]
     Dosage: UNK
  5. MERIDIA [Concomitant]
     Dosage: UNK
  6. NAPROXEN [Concomitant]
     Dosage: UNK
  7. PANTOLOC [Concomitant]
     Dosage: UNK
  8. PREVACID [Concomitant]
     Dosage: UNK
  9. PROZAC [Concomitant]
     Dosage: UNK
  10. REMERON RD [Concomitant]
     Dosage: UNK
  11. TRAMACET [Concomitant]
     Dosage: UNK
  12. TRAZODONE [Concomitant]
     Dosage: UNK
  13. VALTREX [Concomitant]
     Dosage: UNK
  14. ZANTAC [Concomitant]
     Dosage: UNK
  15. ASA [Concomitant]
     Dosage: UNK
  16. ATIVAN [Concomitant]
     Dosage: UNK
  17. CIPRALEX [Concomitant]
     Dosage: UNK
  18. CYMBALTA [Concomitant]
     Dosage: UNK

REACTIONS (1)
  - Alopecia [Unknown]
